FAERS Safety Report 7263114-7 (Version None)
Quarter: 2011Q1

REPORT INFORMATION
  Report Type: 
  Country: None (occurrence: None)
  Receive Date: 20110130
  Receipt Date: 20101008
  Transmission Date: 20110831
  Serious: No
  Sender: FDA-Public Use
  Company Number: US-ABBOTT-10P-163-0677591-00

PATIENT
  Sex: Female
  Weight: 55.388 kg

DRUGS (12)
  1. HUMIRA [Suspect]
     Indication: RHEUMATOID ARTHRITIS
     Route: 058
     Dates: start: 20100701, end: 20100930
  2. METHOTREXATE [Concomitant]
     Indication: RHEUMATOID ARTHRITIS
  3. ICAPS [Concomitant]
     Indication: MEDICAL DIET
     Route: 048
  4. HUMIRA [Suspect]
     Dates: start: 20100930, end: 20101008
  5. FOLIC ACID [Concomitant]
     Indication: VITAMIN SUPPLEMENTATION
     Route: 048
  6. GLUCOSAMINE + CHONDROITIN [Concomitant]
     Indication: MINERAL SUPPLEMENTATION
     Route: 048
  7. PREDNISONE [Concomitant]
     Indication: RHEUMATOID ARTHRITIS
     Dosage: TAPER
     Route: 048
  8. DEXILANT [Concomitant]
     Indication: GASTROOESOPHAGEAL REFLUX DISEASE
     Route: 048
     Dates: start: 20100901
  9. MULTI-VITAMIN [Concomitant]
     Indication: VITAMIN SUPPLEMENTATION
     Route: 048
  10. CALCIUM [Concomitant]
     Indication: MINERAL SUPPLEMENTATION
     Route: 048
  11. FISH OIL [Concomitant]
     Indication: MEDICAL DIET
     Route: 048
  12. RED YEAST RICE [Concomitant]
     Indication: MEDICAL DIET
     Route: 048

REACTIONS (2)
  - ARTHRALGIA [None]
  - RASH [None]
